FAERS Safety Report 7445051-8 (Version None)
Quarter: 2011Q2

REPORT INFORMATION
  Report Type: 
  Country: None (occurrence: None)
  Receive Date: 20110426
  Receipt Date: 20110426
  Transmission Date: 20111010
  Serious: Yes (Hospitalization)
  Sender: FDA-Public Use
  Company Number: None

PATIENT
  Sex: Male
  Weight: 170.5 kg

DRUGS (2)
  1. EFFIENT [Suspect]
     Indication: CORONARY ARTERY DISEASE
     Dosage: 10MG ONCE DAILY PO
     Route: 048
     Dates: start: 20110125, end: 20110421
  2. PRADAXA [Suspect]
     Indication: CORONARY ARTERY DISEASE
     Dosage: 150MG TWICE DAILY PO
     Route: 048
     Dates: start: 20110125, end: 20110421

REACTIONS (1)
  - MELAENA [None]
